FAERS Safety Report 5210669-X (Version None)
Quarter: 2007Q1

REPORT INFORMATION
  Report Type: 
  Country: None (occurrence: None)
  Receive Date: 20070116
  Receipt Date: 20070116
  Transmission Date: 20070707
  Serious: Yes (Hospitalization)
  Sender: FDA-Public Use
  Company Number: None

PATIENT
  Age: 79 Year
  Sex: Male
  Weight: 64.7 kg

DRUGS (2)
  1. SIMVASTATIN [Suspect]
  2. WARFARIN SODIUM [Concomitant]

REACTIONS (1)
  - RHABDOMYOLYSIS [None]
